FAERS Safety Report 17349189 (Version 1)
Quarter: 2020Q1

REPORT INFORMATION
  Report Type: Report from Study
  Country: BE (occurrence: BE)
  Receive Date: 20200130
  Receipt Date: 20200130
  Transmission Date: 20200409
  Serious: Yes (Hospitalization)
  Sender: FDA-Public Use
  Company Number: PHHO2004BE10737

PATIENT
  Age: 68 Year
  Sex: Female

DRUGS (3)
  1. RAD 666 / RAD 001A [Suspect]
     Active Substance: EVEROLIMUS
     Dosage: 5 MG
     Route: 048
     Dates: start: 20040809, end: 20040819
  2. RAD 666 / RAD 001A [Suspect]
     Active Substance: EVEROLIMUS
     Indication: BREAST CANCER
     Dosage: 10 MG, QD
     Route: 048
     Dates: start: 20040709, end: 20040730
  3. FEMARA [Suspect]
     Active Substance: LETROZOLE
     Indication: BREAST CANCER
     Dosage: UNK
     Route: 048

REACTIONS (5)
  - Disease progression [Unknown]
  - Thrombocytopenia [Unknown]
  - Asthenia [Unknown]
  - Mucosal inflammation [Unknown]
  - Decreased appetite [Unknown]

NARRATIVE: CASE EVENT DATE: 20040727
